FAERS Safety Report 4912072-6 (Version None)
Quarter: 2006Q1

REPORT INFORMATION
  Report Type: 
  Country: None (occurrence: None)
  Receive Date: 20060213
  Receipt Date: 20060130
  Transmission Date: 20060701
  Serious: Yes (Hospitalization)
  Sender: FDA-Public Use
  Company Number: 2006P1000080

PATIENT
  Age: 52 Year
  Sex: Male
  Weight: 92 kg

DRUGS (4)
  1. RETEPLASE (RETEPLASE) [Suspect]
     Indication: ACUTE MYOCARDIAL INFARCTION
     Dosage: 5 IU; 1X IV; 5 IU; 1X; IV
     Route: 042
     Dates: start: 20050724, end: 20050724
  2. RETEPLASE (RETEPLASE) [Suspect]
     Indication: ACUTE MYOCARDIAL INFARCTION
     Dosage: 5 IU; 1X IV; 5 IU; 1X; IV
     Route: 042
     Dates: start: 20050724, end: 20050724
  3. ABCIXIMAB    (ABCIXIMAB) [Suspect]
     Indication: ACUTE MYOCARDIAL INFARCTION
     Dosage: 11.5 ML; 1X; IV;  4 ML; HOUR; IV
     Route: 042
     Dates: start: 20050724, end: 20050701
  4. HEPARIN [Concomitant]

REACTIONS (2)
  - BLOOD CREATINE PHOSPHOKINASE INCREASED [None]
  - INJECTION SITE HAEMORRHAGE [None]
